FAERS Safety Report 5754696-2 (Version None)
Quarter: 2008Q2

REPORT INFORMATION
  Report Type: 
  Country: None (occurrence: None)
  Receive Date: 20080530
  Receipt Date: 20080520
  Transmission Date: 20081010
  Serious: Yes (Hospitalization)
  Sender: FDA-Public Use
  Company Number: FR-PFIZER INC-2008044110

PATIENT
  Age: 70 Year
  Sex: Female

DRUGS (12)
  1. SOLU-MEDROL [Suspect]
     Indication: LYMPHOMA
     Route: 042
     Dates: start: 20070901, end: 20080104
  2. DEPO-MEDROL [Suspect]
     Indication: LYMPHOMA
     Route: 037
     Dates: start: 20070901, end: 20080104
  3. CYTARABINE [Suspect]
     Indication: LYMPHOMA
     Route: 037
     Dates: start: 20070901, end: 20080104
  4. METHOTREXATE [Suspect]
     Indication: LYMPHOMA
     Route: 042
     Dates: start: 20070901, end: 20080104
  5. METHOTREXATE [Suspect]
     Route: 037
     Dates: start: 20070901, end: 20080104
  6. ETOPOSIDE [Suspect]
     Indication: LYMPHOMA
     Route: 042
     Dates: start: 20070901, end: 20080104
  7. BICNU [Suspect]
     Indication: LYMPHOMA
     Route: 042
     Dates: start: 20070901, end: 20080104
  8. ZOPHREN [Concomitant]
     Route: 048
     Dates: start: 20070901, end: 20080104
  9. BACTRIM [Concomitant]
     Route: 048
  10. MOPRAL [Concomitant]
  11. PAROXETINE HCL [Concomitant]
  12. FOLIC ACID [Concomitant]

REACTIONS (3)
  - CRANIAL NERVE PARALYSIS [None]
  - DYSPHAGIA [None]
  - EYELID PTOSIS [None]
